FAERS Safety Report 4367439-4 (Version None)
Quarter: 2004Q2

REPORT INFORMATION
  Report Type: 
  Country: None (occurrence: None)
  Receive Date: 20040528
  Receipt Date: 20040511
  Transmission Date: 20050107
  Serious: Yes (Hospitalization)
  Sender: FDA-Public Use
  Company Number: CIO04012208

PATIENT
  Sex: Female

DRUGS (2)
  1. PEPTO-BISMOL, FORM/VERSION/FLAVOR UNKNOWN (BISMUTH SUBSALICYLATE 262 O [Suspect]
     Indication: STOMACH DISCOMFORT
     Dosage: UNK DOSE, NK FREQ, ORAL
     Route: 048
  2. NEXIUM [Concomitant]

REACTIONS (4)
  - BLOOD DISORDER [None]
  - HAEMOPTYSIS [None]
  - MALAISE [None]
  - ULCER HAEMORRHAGE [None]
